FAERS Safety Report 5858376-4 (Version None)
Quarter: 2008Q3

REPORT INFORMATION
  Report Type: 
  Country: None (occurrence: None)
  Receive Date: 20080818
  Receipt Date: 20080529
  Transmission Date: 20090109
  Serious: No
  Sender: FDA-Public Use
  Company Number: WAES 0805USA06279

PATIENT
  Age: 77 Year
  Sex: Male

DRUGS (10)
  1. JANUVIA [Suspect]
     Indication: DIABETES MELLITUS
     Dosage: 50 MG/DAILY/PO
     Route: 048
     Dates: start: 20071101
  2. BUMEX [Concomitant]
  3. CLARINEX [Concomitant]
  4. CRESTOR [Concomitant]
  5. PREVACID [Concomitant]
  6. TOPROL-XL [Concomitant]
  7. ALLOPURINOL [Concomitant]
  8. GLYBURIDE [Concomitant]
  9. POTASSIUM (UNSPECIFIED) [Concomitant]
  10. QUINAPRIL HCL [Concomitant]

REACTIONS (2)
  - CHILLS [None]
  - HYPERHIDROSIS [None]
